FAERS Safety Report 7481250-7 (Version None)
Quarter: 2011Q2

REPORT INFORMATION
  Report Type: 
  Country: None (occurrence: None)
  Receive Date: 20110512
  Receipt Date: 20110512
  Transmission Date: 20111010
  Serious: Yes (Other)
  Sender: FDA-Public Use
  Company Number: None

PATIENT
  Age: 61 Year
  Sex: Female
  Weight: 67.1324 kg

DRUGS (1)
  1. GLIPIZIDE [Suspect]
     Indication: TYPE 2 DIABETES MELLITUS
     Dosage: 5 MG 1 DAILY
     Dates: start: 20110224, end: 20110311

REACTIONS (8)
  - LIMB INJURY [None]
  - NERVOUSNESS [None]
  - HEART RATE INCREASED [None]
  - NAUSEA [None]
  - ANXIETY [None]
  - LOSS OF CONSCIOUSNESS [None]
  - VOMITING [None]
  - BLOOD GLUCOSE INCREASED [None]
